FAERS Safety Report 23931640 (Version 1)
Quarter: 2024Q2

REPORT INFORMATION
  Report Type: Spontaneous
  Country: US (occurrence: None)
  Receive Date: 20240603
  Receipt Date: 20240603
  Transmission Date: 20240716
  Serious: No
  Sender: FDA-Public Use
  Company Number: 2024A119899

PATIENT

DRUGS (1)
  1. SYMBICORT [Suspect]
     Active Substance: BUDESONIDE\FORMOTEROL FUMARATE DIHYDRATE
     Dosage: UNKNOWN UNKNOWN
     Route: 055

REACTIONS (8)
  - Fatigue [Unknown]
  - Nervousness [Unknown]
  - Dizziness [Unknown]
  - Chest discomfort [Unknown]
  - Feeling abnormal [Unknown]
  - Feeling jittery [Unknown]
  - Secretion discharge [Unknown]
  - Incorrect dosage administered [Unknown]
